FAERS Safety Report 11157579 (Version 1)
Quarter: 2015Q2

REPORT INFORMATION
  Report Type: Spontaneous
  Country: KR (occurrence: None)
  Receive Date: 20150601
  Receipt Date: 20150601
  Transmission Date: 20150821
  Serious: Yes (Hospitalization)
  Sender: FDA-Public Use
  Company Number: 2015FE01742

PATIENT

DRUGS (1)
  1. DESMOPRESSIN (DESMOPRESSIN) [Suspect]
     Active Substance: DESMOPRESSIN
     Indication: NOCTURIA

REACTIONS (2)
  - Hyponatraemia [None]
  - Syncope [None]
